FAERS Safety Report 5568113-9 (Version None)
Quarter: 2007Q4

REPORT INFORMATION
  Report Type: 
  Country: None (occurrence: None)
  Receive Date: 20071218
  Receipt Date: 20071218
  Transmission Date: 20080405
  Serious: No
  Sender: FDA-Public Use
  Company Number: None

PATIENT
  Age: 54 Year
  Sex: Male
  Weight: 72.5755 kg

DRUGS (15)
  1. QUETIAPINE FUMARATE [Suspect]
     Dosage: 1000MG PO 1 DAY
     Route: 048
  2. LORAZEPAM [Suspect]
     Dosage: 10MG PO
     Route: 048
  3. METOPROLOL TARTRATE [Suspect]
     Dosage: 50MG PO
     Route: 048
  4. ACETAMINOPHEN [Concomitant]
  5. NICOTINE [Concomitant]
  6. CARBAMAZEPINE [Concomitant]
  7. GEMFIBROZIL [Concomitant]
  8. ENALAPRIL [Concomitant]
  9. DOCUSATE [Concomitant]
  10. ATORVASTATIN [Concomitant]
  11. METOPROLOL [Concomitant]
  12. MAGNESIUM OXIDE [Concomitant]
  13. ASPIRIN [Concomitant]
  14. LANTUS [Concomitant]
  15. PLAVIX [Concomitant]

REACTIONS (4)
  - BLOOD GLUCOSE FLUCTUATION [None]
  - ORTHOSTATIC HYPOTENSION [None]
  - PULSE ABNORMAL [None]
  - PULSE PRESSURE DECREASED [None]
